FAERS Safety Report 4298759-X (Version None)
Quarter: 2004Q1

REPORT INFORMATION
  Report Type: 
  Country: None (occurrence: None)
  Receive Date: 20040126
  Receipt Date: 20030911
  Transmission Date: 20041129
  Serious: No
  Sender: FDA-Public Use
  Company Number: USA030946967

PATIENT
  Sex: Male

DRUGS (2)
  1. STRATTERA [Suspect]
  2. CLARITIN [Concomitant]

REACTIONS (4)
  - ABNORMAL BEHAVIOUR [None]
  - AGGRESSION [None]
  - DRUG EFFECT DECREASED [None]
  - DRUG INTERACTION [None]
